FAERS Safety Report 6760015-5 (Version None)
Quarter: 2010Q2

REPORT INFORMATION
  Report Type: 
  Country: None (occurrence: None)
  Receive Date: 20100604
  Receipt Date: 20100527
  Transmission Date: 20101027
  Serious: Yes (Hospitalization)
  Sender: FDA-Public Use
  Company Number: 1000014194

PATIENT
  Age: 86 Year
  Sex: Female

DRUGS (1)
  1. MEMANTINE HCL [Suspect]
     Indication: DEMENTIA ALZHEIMER'S TYPE
     Dosage: 10 MG (10 MG, 1 IN 1 D) ORAL
     Route: 048
     Dates: start: 20031219, end: 20100313

REACTIONS (2)
  - HEPATITIS TOXIC [None]
  - PANCREATITIS ACUTE [None]
